FAERS Safety Report 4501951-X (Version None)
Quarter: 2004Q4

REPORT INFORMATION
  Report Type: 
  Country: None (occurrence: None)
  Receive Date: 20041109
  Receipt Date: 20041026
  Transmission Date: 20050328
  Serious: Yes (Other)
  Sender: FDA-Public Use
  Company Number: 2004241756NO

PATIENT
  Age: 68 Year
  Sex: Male

DRUGS (2)
  1. BEXTRA [Suspect]
  2. ASPIRIN [Suspect]

REACTIONS (3)
  - GASTRIC ULCER [None]
  - MELAENA [None]
  - TRANSIENT ISCHAEMIC ATTACK [None]
